FAERS Safety Report 17762824 (Version 3)
Quarter: 2020Q4

REPORT INFORMATION
  Report Type: Report from Study
  Country: AU (occurrence: AU)
  Receive Date: 20200508
  Receipt Date: 20201029
  Transmission Date: 20210113
  Serious: Yes (Other)
  Sender: FDA-Public Use
  Company Number: AU-JNJFOC-20200500255

PATIENT
  Age: 53 Year
  Sex: Female
  Weight: 86 kg

DRUGS (2)
  1. PREDNISOLONE. [Suspect]
     Active Substance: PREDNISOLONE
     Indication: PRODUCT USED FOR UNKNOWN INDICATION
     Route: 065
  2. STELARA [Suspect]
     Active Substance: USTEKINUMAB
     Indication: PYODERMA GANGRENOSUM
     Dosage: 90MG AT WEEK 0, WEEK 4, AND THEN 45MG MONTHLY THEREAFTER.?THE LAST DOSE WAS ON 20-JUL-2020
     Route: 058

REACTIONS (4)
  - Product use in unapproved indication [Unknown]
  - Gastric ulcer [Unknown]
  - Off label use [Unknown]
  - Pyoderma gangrenosum [Not Recovered/Not Resolved]
